FAERS Safety Report 13419820 (Version 2)
Quarter: 2017Q2

REPORT INFORMATION
  Report Type: Spontaneous
  Country: US (occurrence: US)
  Receive Date: 20170407
  Receipt Date: 20170516
  Transmission Date: 20170830
  Serious: No
  Sender: FDA-Public Use
  Company Number: US-PFIZER INC-2016170861

PATIENT
  Age: 13 Year
  Sex: Male
  Weight: 53 kg

DRUGS (3)
  1. GENOTROPIN [Suspect]
     Active Substance: SOMATROPIN
     Indication: GROWTH HORMONE DEFICIENCY
  2. GENOTROPIN [Suspect]
     Active Substance: SOMATROPIN
     Indication: MOYAMOYA DISEASE
     Dosage: 2.4 MG, 1X/DAY
     Route: 058
     Dates: start: 200501, end: 201608
  3. GENOTROPIN [Suspect]
     Active Substance: SOMATROPIN
     Indication: HYPOPITUITARISM

REACTIONS (5)
  - Myalgia [Unknown]
  - Asthenia [Unknown]
  - Disturbance in attention [Unknown]
  - Device issue [Unknown]
  - Drug dose omission [Unknown]

NARRATIVE: CASE EVENT DATE: 20160317
